FAERS Safety Report 26211788 (Version 1)
Quarter: 2025Q4

REPORT INFORMATION
  Report Type: Spontaneous
  Country: US (occurrence: US)
  Receive Date: 20251230
  Receipt Date: 20251230
  Transmission Date: 20260118
  Serious: No
  Sender: LEO PHARM
  Company Number: US-LEO Pharma-385240

PATIENT
  Age: 33 Year
  Sex: Female

DRUGS (4)
  1. ADBRY [Suspect]
     Active Substance: TRALOKINUMAB-LDRM
     Indication: Eczema
     Dosage: TREATMENT ONGOING?? THEN 2-150 MG SUBCUTANEOUS SYRINGES INJECTIONS EVERY 14 DAYS THEREAFTER (11/07/2
     Route: 058
     Dates: start: 20251107
  2. ADBRY [Suspect]
     Active Substance: TRALOKINUMAB-LDRM
     Indication: Eczema
     Dosage: TREATMENT ONGOING?? THEN 2-150 MG SUBCUTANEOUS SYRINGES INJECTIONS EVERY 14 DAYS THEREAFTER (11/07/2
     Route: 058
     Dates: start: 20251107
  3. ADBRY [Suspect]
     Active Substance: TRALOKINUMAB-LDRM
     Indication: Eczema
     Dosage: TREATMENT ONGOING?? 4-150 MG SUBCUTANEOUS SYRINGE INJECTIONS ON DAY ONE (APPROXIMATED 10/24/2025)
     Route: 058
     Dates: start: 20251024
  4. ADBRY [Suspect]
     Active Substance: TRALOKINUMAB-LDRM
     Indication: Eczema
     Dosage: TREATMENT ONGOING?? 4-150 MG SUBCUTANEOUS SYRINGE INJECTIONS ON DAY ONE (APPROXIMATED 10/24/2025)
     Route: 058
     Dates: start: 20251024

REACTIONS (2)
  - Nasopharyngitis [Recovering/Resolving]
  - Cough [Unknown]

NARRATIVE: CASE EVENT DATE: 20251207
